FAERS Safety Report 9631903 (Version 1)
Quarter: 2013Q4

REPORT INFORMATION
  Report Type: Spontaneous
  Country: US (occurrence: None)
  Receive Date: 20131017
  Receipt Date: 20131017
  Transmission Date: 20140711
  Serious: Yes (Other)
  Sender: FDA-Public Use
  Company Number: None

PATIENT
  Age: 67 Year
  Sex: Female
  Weight: 73.48 kg

DRUGS (2)
  1. CLONAZEPAM [Suspect]
     Indication: ANXIETY
     Dosage: 1 PILL FOUR TIMES DAILY
     Route: 048
     Dates: start: 20130819, end: 20131014
  2. CLONAZEPAM [Suspect]
     Indication: INSOMNIA
     Dosage: 1 PILL FOUR TIMES DAILY
     Route: 048
     Dates: start: 20130819, end: 20131014

REACTIONS (2)
  - Dysphonia [None]
  - Aphasia [None]
